FAERS Safety Report 20255478 (Version 1)
Quarter: 2021Q4

REPORT INFORMATION
  Report Type: Spontaneous
  Country: DE (occurrence: DE)
  Receive Date: 20211230
  Receipt Date: 20211230
  Transmission Date: 20220304
  Serious: Yes (Hospitalization)
  Sender: FDA-Public Use
  Company Number: DE-ADRED-07484-01

PATIENT
  Age: 61 Year
  Sex: Male

DRUGS (8)
  1. PREDNISOLONE [Suspect]
     Active Substance: PREDNISOLONE
     Dosage: 2 DOSAGE FORMS DAILY; 50 MG, 2-0-0-0,
     Route: 048
  2. PREDNISOLONE [Suspect]
     Active Substance: PREDNISOLONE
     Dosage: 10 MILLIGRAM DAILY; 10 MG, 0-1-0-0,
     Route: 048
  3. FLUOROURACIL [Suspect]
     Active Substance: FLUOROURACIL
     Dosage: ACCORDING TO THE SCHEME
  4. NIVOLUMAB [Suspect]
     Active Substance: NIVOLUMAB
     Dosage: ACCORDING TO THE SCHEME
  5. IPILIMUMAB [Suspect]
     Active Substance: IPILIMUMAB
     Dosage: ACCORDING TO THE SCHEME
  6. DARBEPOETIN ALFA [Concomitant]
     Active Substance: DARBEPOETIN ALFA
     Dosage: 150 MCG, REQUIREMENT, PRE-FILLED SYRINGES
     Route: 058
  7. FOLIC ACID [Concomitant]
     Active Substance: FOLIC ACID
     Dosage: ACCORDING TO THE SCHEME
  8. CHOLECALCIFEROL [Concomitant]
     Active Substance: CHOLECALCIFEROL
     Dosage: ACCORDING TO THE SCHEME
     Route: 048

REACTIONS (3)
  - General physical health deterioration [Unknown]
  - Fatigue [Unknown]
  - Muscular weakness [Unknown]
